FAERS Safety Report 5818615-2 (Version None)
Quarter: 2008Q3

REPORT INFORMATION
  Report Type: 
  Country: None (occurrence: None)
  Receive Date: 20080722
  Receipt Date: 20080714
  Transmission Date: 20090109
  Serious: Yes (Other)
  Sender: FDA-Public Use
  Company Number: US-ELI_LILLY_AND_COMPANY-US200807003672

PATIENT
  Sex: Female
  Weight: 90.703 kg

DRUGS (6)
  1. BYETTA [Suspect]
     Indication: TYPE 2 DIABETES MELLITUS
     Dosage: 5 UG, 2/D
     Route: 058
     Dates: start: 20080401, end: 20080501
  2. BYETTA [Suspect]
     Dosage: 10 UG, 2/D
     Route: 058
     Dates: start: 20080501, end: 20080709
  3. RESTORIL [Concomitant]
     Indication: INSOMNIA
     Dosage: UNK, EACH EVENING
     Dates: start: 20080401
  4. KLONOPIN [Concomitant]
     Indication: BIPOLAR DISORDER
     Dosage: 2 MG, DAILY (1/D)
     Route: 048
     Dates: start: 20080401
  5. DESYREL [Concomitant]
     Indication: BIPOLAR DISORDER
     Dates: start: 20080401
  6. DEPAKOTE [Concomitant]
     Indication: BIPOLAR DISORDER
     Dosage: 500 MG, 2/D
     Route: 048

REACTIONS (14)
  - AGITATION [None]
  - BIPOLAR DISORDER [None]
  - CONFUSIONAL STATE [None]
  - DIZZINESS [None]
  - FALL [None]
  - HEART RATE INCREASED [None]
  - HUNGER [None]
  - IRRITABILITY [None]
  - LOSS OF CONSCIOUSNESS [None]
  - NAUSEA [None]
  - NERVOUSNESS [None]
  - THIRST [None]
  - TREMOR [None]
  - VOMITING [None]
